FAERS Safety Report 23672314 (Version 2)
Quarter: 2024Q2

REPORT INFORMATION
  Report Type: Report from Study
  Country: CA (occurrence: None)
  Receive Date: 20240326
  Receipt Date: 20240429
  Transmission Date: 20240715
  Serious: Yes (Hospitalization, Other)
  Sender: FDA-Public Use
  Company Number: CA-PFIZER INC-202400068672

PATIENT
  Age: 46 Year
  Sex: Female

DRUGS (12)
  1. METHOTREXATE [Suspect]
     Active Substance: METHOTREXATE
     Indication: Product used for unknown indication
  2. ACTEMRA [Suspect]
     Active Substance: TOCILIZUMAB
     Indication: Rheumatoid arthritis
     Dosage: 208 MG, 1 EVERY 4 WEEKS
  3. ACTEMRA [Suspect]
     Active Substance: TOCILIZUMAB
  4. PREDNISONE [Suspect]
     Active Substance: PREDNISONE
     Indication: Product used for unknown indication
  5. COD LIVER OIL [Concomitant]
     Active Substance: COD LIVER OIL
  6. HUMIRA [Concomitant]
     Active Substance: ADALIMUMAB
     Indication: Rheumatoid arthritis
  7. IBUPROFEN [Concomitant]
     Active Substance: IBUPROFEN
  8. IRON [Concomitant]
     Active Substance: IRON
  9. MAGNESIUM [Concomitant]
     Active Substance: MAGNESIUM
  10. PANTOPRAZOLE [Concomitant]
     Active Substance: PANTOPRAZOLE
  11. RINVOQ [Concomitant]
     Active Substance: UPADACITINIB
  12. TYLENOL [Concomitant]
     Active Substance: ACETAMINOPHEN

REACTIONS (46)
  - Drug ineffective [Not Recovered/Not Resolved]
  - Anxiety [Not Recovered/Not Resolved]
  - Arterial disorder [Not Recovered/Not Resolved]
  - Arthralgia [Not Recovered/Not Resolved]
  - Blood creatinine abnormal [Not Recovered/Not Resolved]
  - Blood test abnormal [Not Recovered/Not Resolved]
  - Bone erosion [Not Recovered/Not Resolved]
  - C-reactive protein abnormal [Not Recovered/Not Resolved]
  - COVID-19 [Not Recovered/Not Resolved]
  - Dizziness [Not Recovered/Not Resolved]
  - Dysstasia [Not Recovered/Not Resolved]
  - Elbow deformity [Not Recovered/Not Resolved]
  - Fatigue [Not Recovered/Not Resolved]
  - Finger deformity [Not Recovered/Not Resolved]
  - Foot deformity [Not Recovered/Not Resolved]
  - Gait disturbance [Not Recovered/Not Resolved]
  - Gastrointestinal disorder [Not Recovered/Not Resolved]
  - Gingival disorder [Not Recovered/Not Resolved]
  - Headache [Not Recovered/Not Resolved]
  - Heart rate increased [Not Recovered/Not Resolved]
  - Heavy menstrual bleeding [Not Recovered/Not Resolved]
  - Joint dislocation [Not Recovered/Not Resolved]
  - Joint effusion [Not Recovered/Not Resolved]
  - Joint range of motion decreased [Not Recovered/Not Resolved]
  - Joint stiffness [Not Recovered/Not Resolved]
  - Joint swelling [Not Recovered/Not Resolved]
  - Malaise [Not Recovered/Not Resolved]
  - Mobility decreased [Not Recovered/Not Resolved]
  - Movement disorder [Not Recovered/Not Resolved]
  - Anxiety [Not Recovered/Not Resolved]
  - Muscle spasms [Not Recovered/Not Resolved]
  - Musculoskeletal stiffness [Not Recovered/Not Resolved]
  - Nervous system disorder [Not Recovered/Not Resolved]
  - Osteoarthritis [Not Recovered/Not Resolved]
  - Pain [Not Recovered/Not Resolved]
  - Pain in extremity [Not Recovered/Not Resolved]
  - Palpitations [Not Recovered/Not Resolved]
  - Peripheral swelling [Not Recovered/Not Resolved]
  - Red blood cell sedimentation rate decreased [Not Recovered/Not Resolved]
  - Rheumatoid arthritis [Not Recovered/Not Resolved]
  - Skin discolouration [Not Recovered/Not Resolved]
  - Tooth disorder [Not Recovered/Not Resolved]
  - Wrist deformity [Not Recovered/Not Resolved]
  - Muscle atrophy [Not Recovered/Not Resolved]
  - Gingival bleeding [Not Recovered/Not Resolved]
  - Oedema [Not Recovered/Not Resolved]
